FAERS Safety Report 25466645 (Version 2)
Quarter: 2025Q4

REPORT INFORMATION
  Report Type: Spontaneous
  Country: US (occurrence: US)
  Receive Date: 20250623
  Receipt Date: 20251119
  Transmission Date: 20260118
  Serious: Yes (Other)
  Sender: COOPERSURGICAL
  Company Number: US-COOPERSURGICAL, INC.-2025CPS004990

PATIENT
  Age: 29 Year
  Sex: Female
  Weight: 81.633 kg

DRUGS (1)
  1. PARAGARD T 380A [Suspect]
     Active Substance: COPPER
     Indication: Contraception
     Dosage: UNK
     Route: 015
     Dates: start: 20210108

REACTIONS (15)
  - Device breakage [Unknown]
  - Foreign body in reproductive tract [Unknown]
  - Complication of device removal [Unknown]
  - Embedded device [Unknown]
  - Complication associated with device [Unknown]
  - Leukocytosis [Unknown]
  - Dysuria [Unknown]
  - Back pain [Unknown]
  - Emotional distress [Unknown]
  - Device dislocation [Unknown]
  - Dysmenorrhoea [Unknown]
  - Pelvic pain [Unknown]
  - Abdominal pain lower [Unknown]
  - Abnormal uterine bleeding [Unknown]
  - Device expulsion [Unknown]

NARRATIVE: CASE EVENT DATE: 20230121
